FAERS Safety Report 10465193 (Version 2)
Quarter: 2014Q4

REPORT INFORMATION
  Report Type: Report from Study
  Country: US (occurrence: US)
  Receive Date: 20140919
  Receipt Date: 20141126
  Transmission Date: 20150528
  Serious: Yes (Death, Other)
  Sender: FDA-Public Use
  Company Number: US-TEVA-509297USA

PATIENT
  Sex: Male

DRUGS (6)
  1. CLOZAPINE. [Suspect]
     Active Substance: CLOZAPINE
     Indication: PARKINSON^S DISEASE
  2. HALDOL [Concomitant]
     Active Substance: HALOPERIDOL
  3. CLOZAPINE. [Suspect]
     Active Substance: CLOZAPINE
     Indication: DEMENTIA WITH LEWY BODIES
     Route: 048
  4. THORAZINE [Concomitant]
     Active Substance: CHLORPROMAZINE
  5. DEMEROL [Concomitant]
     Active Substance: MEPERIDINE HYDROCHLORIDE
  6. PROZAC [Concomitant]
     Active Substance: FLUOXETINE HYDROCHLORIDE

REACTIONS (3)
  - Blood pressure decreased [Not Recovered/Not Resolved]
  - Death [Fatal]
  - Loss of consciousness [Not Recovered/Not Resolved]
